FAERS Safety Report 5571819-9 (Version None)
Quarter: 2007Q4

REPORT INFORMATION
  Report Type: 
  Country: None (occurrence: None)
  Receive Date: 20071221
  Receipt Date: 20071214
  Transmission Date: 20080405
  Serious: Yes (Life-Threatening, Hospitalization)
  Sender: FDA-Public Use
  Company Number: B0500615A

PATIENT
  Age: 83 Year
  Sex: Female

DRUGS (15)
  1. ZOPHREN [Suspect]
     Indication: PREMEDICATION
     Dosage: 8MG PER DAY
     Route: 042
     Dates: start: 20070801, end: 20071007
  2. CYCLOPHOSPHAMIDE [Suspect]
     Dosage: 750MGM2 CYCLIC
     Route: 042
     Dates: start: 20070801, end: 20071003
  3. MABTHERA [Suspect]
     Dosage: 375MGM2 CYCLIC
     Route: 042
     Dates: start: 20070801, end: 20071003
  4. CAELYX [Suspect]
     Dosage: 500MGM2 CYCLIC
     Route: 042
     Dates: start: 20070801, end: 20071003
  5. ELDISINE [Suspect]
     Dosage: 3MG CYCLIC
     Route: 042
     Dates: start: 20070919, end: 20071003
  6. ONCOVIN [Suspect]
     Route: 042
     Dates: start: 20070801, end: 20070919
  7. GRANOCYTE [Suspect]
     Indication: PREMEDICATION
     Route: 058
     Dates: start: 20070801, end: 20071011
  8. SOLUPRED [Concomitant]
     Indication: PREMEDICATION
     Dosage: 40MG PER DAY
     Route: 048
     Dates: start: 20070701
  9. POLARAMINE [Concomitant]
     Indication: PREMEDICATION
     Route: 065
     Dates: start: 20070801
  10. DAFALGAN [Concomitant]
     Indication: PREMEDICATION
     Route: 065
     Dates: start: 20070801
  11. PRIMPERAN INJ [Concomitant]
     Indication: PREMEDICATION
     Route: 065
     Dates: start: 20070801
  12. VASTAREL [Concomitant]
     Route: 065
  13. POTASSIUM CHLORIDE [Concomitant]
     Route: 065
  14. MOPRAL [Concomitant]
     Route: 065
  15. KARDEGIC [Concomitant]
     Route: 065

REACTIONS (9)
  - CHILLS [None]
  - COUGH [None]
  - DYSPNOEA [None]
  - HYPOXIA [None]
  - INTERSTITIAL LUNG DISEASE [None]
  - LUNG DISORDER [None]
  - PARAESTHESIA [None]
  - PYREXIA [None]
  - RALES [None]
